FAERS Safety Report 6005215-7 (Version None)
Quarter: 2008Q4

REPORT INFORMATION
  Report Type: 
  Country: None (occurrence: None)
  Receive Date: 20081215
  Receipt Date: 20081210
  Transmission Date: 20090506
  Serious: Yes (Hospitalization)
  Sender: FDA-Public Use
  Company Number: 1000003130

PATIENT
  Age: 18 Year
  Sex: Female

DRUGS (2)
  1. LEXAPRO [Suspect]
     Indication: DEPRESSION
     Dosage: ORAL
     Dates: start: 20060101, end: 20061101
  2. WELLBUTRIN [Concomitant]

REACTIONS (2)
  - CONTUSION [None]
  - INTENTIONAL SELF-INJURY [None]
